FAERS Safety Report 14899755 (Version 1)
Quarter: 2018Q2

REPORT INFORMATION
  Report Type: Other
  Country: DE (occurrence: DE)
  Receive Date: 20180516
  Receipt Date: 20180516
  Transmission Date: 20180711
  Serious: Yes (Hospitalization)
  Sender: FDA-Public Use
  Company Number: DE-MACLEODS PHARMACEUTICALS US LTD-MAC2018013303

PATIENT

DRUGS (13)
  1. OMNIFLORA N [Concomitant]
     Indication: PRODUCT USED FOR UNKNOWN INDICATION
     Dosage: UNK, BID, (25|25 MG, 1-0-1-0)
     Route: 048
  2. MOVICOL [Concomitant]
     Active Substance: POLYETHYLENE GLYCOL 3350\POTASSIUM CHLORIDE\SODIUM BICARBONATE\SODIUM CHLORIDE
     Indication: PRODUCT USED FOR UNKNOWN INDICATION
     Dosage: UNK, QD, (13.125|0.3507|0.1785 G, 1-0-0-0, BAG)
     Route: 048
  3. ARCOXIA [Concomitant]
     Active Substance: ETORICOXIB
     Indication: PRODUCT USED FOR UNKNOWN INDICATION
     Dosage: 90 MILLIGRAM, BID, (1-0-1-0)
     Route: 048
  4. ONDANSETRON [Concomitant]
     Active Substance: ONDANSETRON
     Indication: PRODUCT USED FOR UNKNOWN INDICATION
     Dosage: 4 MILLIGRAM, BID, (1-0-1-0)
     Route: 048
  5. TARGIN 20MG/10MG [Concomitant]
     Active Substance: NALOXONE HYDROCHLORIDE\OXYCODONE HYDROCHLORIDE
     Indication: PRODUCT USED FOR UNKNOWN INDICATION
     Dosage: (20|10 MG, 1-0-1-0)
     Route: 048
  6. MINIRIN [Suspect]
     Active Substance: DESMOPRESSIN ACETATE
     Indication: PRODUCT USED FOR UNKNOWN INDICATION
     Dosage: BID, 60 ?G, (1-0-1-0)
     Route: 048
  7. STAPHYLEX INFUSION 2G [Concomitant]
     Indication: PRODUCT USED FOR UNKNOWN INDICATION
     Dosage: 2 GM, TID, (1-1-1-0), INJECTION OR INFUSION
     Route: 042
  8. CERTOPARIN SODIUM [Concomitant]
     Active Substance: CERTOPARIN SODIUM
     Indication: PRODUCT USED FOR UNKNOWN INDICATION
     Dosage: 3000 INTERNATIONAL UNIT, QD, (0-0-1-0, INJECTION/INFUSION)
     Route: 058
  9. NALOXONE, TILIDINE [Concomitant]
     Indication: PRODUCT USED FOR UNKNOWN INDICATION
     Dosage: UNK UNK, BID, (100|8 MG, 1-0-1-0)
     Route: 048
  10. PANTOPRAZOLE  20 MG TABLET [Suspect]
     Active Substance: PANTOPRAZOLE
     Indication: PRODUCT USED FOR UNKNOWN INDICATION
     Dosage: 20 MILLIGRAM, QD, (1-0-0-0)
     Route: 048
  11. L-THYROXINE SODIUM 0.100 MG TABLET [Concomitant]
     Indication: PRODUCT USED FOR UNKNOWN INDICATION
     Dosage: 100 MICROGRAM, QD, (1-0-0-0)
     Route: 048
  12. CLINDAMYCIN. [Concomitant]
     Active Substance: CLINDAMYCIN
     Indication: PRODUCT USED FOR UNKNOWN INDICATION
     Dosage: 600 MILLIGRAM, BID, (1-0-1-0)
     Route: 048
  13. METAMIZOL [Concomitant]
     Active Substance: METAMIZOLE SODIUM
     Indication: PRODUCT USED FOR UNKNOWN INDICATION
     Dosage: 500 MILLIGRAM, QOD, (1-1-1-1)
     Route: 048

REACTIONS (5)
  - Drug prescribing error [Unknown]
  - Nausea [Unknown]
  - Hyponatraemia [Unknown]
  - Vomiting [Unknown]
  - Product used for unknown indication [Unknown]
